FAERS Safety Report 9803954 (Version 1)
Quarter: 2014Q1

REPORT INFORMATION
  Report Type: Spontaneous
  Country: US (occurrence: US)
  Receive Date: 20140108
  Receipt Date: 20140108
  Transmission Date: 20141002
  Serious: Yes (Death, Other)
  Sender: FDA-Public Use
  Company Number: US-UCBSA-108550

PATIENT
  Age: 45 Year
  Sex: Male

DRUGS (3)
  1. ACETAMINOPHEN/ HYDROCODONE [Suspect]
     Route: 048
  2. ETHYLENE GLYCOL [Suspect]
     Route: 048
  3. FLUOXETINE [Suspect]
     Route: 048

REACTIONS (1)
  - Completed suicide [Fatal]
